FAERS Safety Report 9502584 (Version 1)
Quarter: 2013Q3

REPORT INFORMATION
  Report Type: Spontaneous
  Country: FR (occurrence: FR)
  Receive Date: 20130906
  Receipt Date: 20130906
  Transmission Date: 20140515
  Serious: Yes (Hospitalization)
  Sender: FDA-Public Use
  Company Number: FR-ELI_LILLY_AND_COMPANY-FR201308008227

PATIENT
  Age: 89 Year
  Sex: Female

DRUGS (5)
  1. CYMBALTA [Suspect]
     Indication: DEPRESSION
     Dosage: UNK, UNKNOWN
     Route: 048
     Dates: start: 201303, end: 20130519
  2. DISCOTRINE [Concomitant]
     Dosage: UNK, UNKNOWN
  3. COVERAM ARG [Concomitant]
     Dosage: UNK, UNKNOWN
     Route: 065
  4. LASILIX                            /00032601/ [Concomitant]
     Dosage: 40 MG, UNKNOWN
     Route: 065
  5. MOPRAL                             /00661201/ [Concomitant]
     Dosage: 20 MG, UNKNOWN
     Route: 065

REACTIONS (1)
  - Major depression [Not Recovered/Not Resolved]
